FAERS Safety Report 5525211-3 (Version None)
Quarter: 2007Q4

REPORT INFORMATION
  Report Type: 
  Country: None (occurrence: None)
  Receive Date: 20071126
  Receipt Date: 20071119
  Transmission Date: 20080405
  Serious: Yes (Other)
  Sender: FDA-Public Use
  Company Number: US-BRISTOL-MYERS SQUIBB COMPANY-13989876

PATIENT
  Sex: Female

DRUGS (6)
  1. CYCLOPHOSPHAMIDE [Suspect]
  2. METHOTREXATE [Suspect]
  3. CYTARABINE [Suspect]
  4. AZATHIOPRINE [Suspect]
  5. PREDNISOLONE [Suspect]
  6. RADIOTHERAPY [Suspect]

REACTIONS (2)
  - GRAFT VERSUS HOST DISEASE [None]
  - SQUAMOUS CELL CARCINOMA [None]
